FAERS Safety Report 9504385 (Version 1)
Quarter: 2013Q3

REPORT INFORMATION
  Report Type: Report from Study
  Country: US (occurrence: US)
  Receive Date: 20130906
  Receipt Date: 20130906
  Transmission Date: 20140515
  Serious: Yes (Hospitalization)
  Sender: FDA-Public Use
  Company Number: US-BRISTOL-MYERS SQUIBB COMPANY-19345560

PATIENT
  Sex: Male

DRUGS (8)
  1. IPILIMUMAB [Suspect]
     Indication: PROSTATE CANCER
     Dosage: SECOND DOSE: 930MG
     Route: 042
  2. LUPRON [Suspect]
     Indication: PROSTATE CANCER
     Route: 030
  3. METFORMIN HCL [Suspect]
  4. HYDROCORTISONE [Suspect]
     Dosage: 20 MG QAM AND 10MG PO QPM
     Route: 048
  5. AMBIEN [Suspect]
     Dosage: 1/2 TABLET
  6. BACTRIM DS [Suspect]
     Dosage: 1DF: 1 TABLET
     Route: 048
  7. DIFLUCAN [Suspect]
     Route: 048
  8. MOXIFLOXACIN [Suspect]

REACTIONS (1)
  - Pyrexia [Unknown]
